FAERS Safety Report 9155996 (Version 7)
Quarter: 2014Q4

REPORT INFORMATION
  Report Type: Spontaneous
  Country: JP (occurrence: JP)
  Receive Date: 20130311
  Receipt Date: 20141001
  Transmission Date: 20150529
  Serious: Yes (Hospitalization, Other)
  Sender: FDA-Public Use
  Company Number: JP-B.I. PHARMACEUTICALS,INC./RIDGEFIELD-2013-BI-04043NB

PATIENT
  Age: 40 Year
  Sex: Female
  Weight: 96 kg

DRUGS (4)
  1. BAKUMONDOTO / BAKUMONDOTO [Concomitant]
     Dosage: 9 G
     Route: 048
  2. MICOMBI COMBINATION [Suspect]
     Active Substance: HYDROCHLOROTHIAZIDE\TELMISARTAN
     Indication: HYPERTENSION
     Dosage: 1 ANZ
     Route: 048
     Dates: start: 20130104, end: 20130206
  3. AMLODIPINE / AMLODIPINE BESILATE [Concomitant]
     Indication: HYPERTENSION
     Dosage: 5 MG
     Route: 048
  4. MUCODYNE / CARBOCISTEINE [Concomitant]
     Dosage: 1500 MG
     Route: 048

REACTIONS (4)
  - Oligohydramnios [Recovered/Resolved]
  - Foetal growth restriction [Unknown]
  - Exposure during pregnancy [Recovered/Resolved]
  - Premature labour [Not Recovered/Not Resolved]

NARRATIVE: CASE EVENT DATE: 20130206
